FAERS Safety Report 8870286 (Version 1)
Quarter: 2012Q4

REPORT INFORMATION
  Report Type: 
  Country: US (occurrence: US)
  Receive Date: 20121023
  Receipt Date: 20121023
  Transmission Date: 20130627
  Serious: No
  Sender: FDA-Public Use
  Company Number: US-AMGEN-USASP2012011259

PATIENT
  Age: 65 Year
  Sex: Female

DRUGS (7)
  1. ENBREL [Suspect]
     Indication: PRODUCT USED FOR UNKNOWN INDICATION
     Dosage: 50 mg, qwk
     Route: 058
  2. JANUVIA [Concomitant]
     Dosage: 25 mg, UNK
  3. TRICOR                             /00090101/ [Concomitant]
     Dosage: 48 mg, UNK
  4. SYNTHROID [Concomitant]
     Dosage: UNK
  5. LISINOPRIL [Concomitant]
     Dosage: 20 mg, UNK
  6. GLYBURIDE [Concomitant]
     Dosage: 1.25 mg, UNK
  7. MULTIVITAMIN                       /01229101/ [Concomitant]
     Dosage: UNK

REACTIONS (2)
  - Blood glucose increased [Unknown]
  - Blood glucose decreased [Unknown]
